FAERS Safety Report 7761231-6 (Version None)
Quarter: 2011Q3

REPORT INFORMATION
  Report Type: 
  Country: None (occurrence: None)
  Receive Date: 20110920
  Receipt Date: 20110908
  Transmission Date: 20111222
  Serious: Yes (Hospitalization)
  Sender: FDA-Public Use
  Company Number: CA-JNJFOC-20110904592

PATIENT
  Sex: Female
  Weight: 79 kg

DRUGS (4)
  1. SOLU-CORTEF [Concomitant]
     Indication: PREMEDICATION
     Dosage: PRN
     Route: 065
  2. REMICADE [Suspect]
     Indication: CROHN'S DISEASE
     Route: 042
  3. ULTRAM [Concomitant]
     Dosage: AS NEEDED
     Route: 065
  4. REMICADE [Suspect]
     Dosage: 100MG/VIAL
     Route: 042
     Dates: start: 20100114

REACTIONS (3)
  - ABDOMINAL PAIN [None]
  - VOMITING [None]
  - DIARRHOEA [None]
